FAERS Safety Report 5494440-X (Version None)
Quarter: 2007Q4

REPORT INFORMATION
  Report Type: 
  Country: None (occurrence: None)
  Receive Date: 20071022
  Receipt Date: 20071022
  Transmission Date: 20080405
  Serious: Yes (Other)
  Sender: FDA-Public Use
  Company Number: None

PATIENT
  Age: 29 Year
  Sex: Female
  Weight: 58.9676 kg

DRUGS (2)
  1. EFFEXOR XR [Suspect]
     Indication: ANXIETY
     Dosage: 225 MG DAILY PO
     Route: 048
     Dates: start: 20060701, end: 20070930
  2. EFFEXOR XR [Suspect]
     Indication: DEPRESSION
     Dosage: 225 MG DAILY PO
     Route: 048
     Dates: start: 20060701, end: 20070930

REACTIONS (8)
  - ABNORMAL BEHAVIOUR [None]
  - BRUXISM [None]
  - DYSKINESIA [None]
  - HYPERHIDROSIS [None]
  - MUSCLE TWITCHING [None]
  - RESTLESSNESS [None]
  - SCREAMING [None]
  - THINKING ABNORMAL [None]
